APPROVED DRUG PRODUCT: SULFACETAMIDE SODIUM
Active Ingredient: SULFACETAMIDE SODIUM
Strength: 30%
Dosage Form/Route: SOLUTION/DROPS;OPHTHALMIC
Application: A089068 | Product #001
Applicant: ALCON PHARMACEUTICALS LTD
Approved: May 5, 1987 | RLD: No | RS: No | Type: DISCN